FAERS Safety Report 5861328-1 (Version None)
Quarter: 2008Q3

REPORT INFORMATION
  Report Type: 
  Country: None (occurrence: None)
  Receive Date: 20080826
  Receipt Date: 20080812
  Transmission Date: 20090109
  Serious: Yes (Hospitalization)
  Sender: FDA-Public Use
  Company Number: 2008S1014485

PATIENT
  Age: 73 Year
  Sex: Female

DRUGS (14)
  1. HUMIRA [Suspect]
     Dosage: ; SUBCUTANEOUS
     Route: 058
     Dates: start: 20080108, end: 20080429
  2. HUMIRA [Suspect]
     Dosage: ; SUBCUTANEOUS
     Route: 058
     Dates: start: 20080530
  3. METHOTREXATE [Suspect]
     Indication: RHEUMATOID ARTHRITIS
     Dosage: ; ORAL, ; ORAL
     Route: 048
     Dates: start: 20080110, end: 20080508
  4. METHOTREXATE [Suspect]
     Indication: RHEUMATOID ARTHRITIS
     Dosage: ; ORAL, ; ORAL
     Route: 048
     Dates: start: 20080529
  5. ALENDRONATE SODIUM [Concomitant]
  6. CALCIUM [Concomitant]
  7. FISH OIL [Concomitant]
  8. CARVEDILOL [Concomitant]
  9. CLOPIDOGREL [Concomitant]
  10. ACETAMINOPHEN [Concomitant]
  11. PENTOXIFYLLINE [Concomitant]
  12. FUROSEMIDE [Concomitant]
  13. DIGOXIN [Concomitant]
  14. RANITIDINE [Concomitant]

REACTIONS (5)
  - ANAEMIA [None]
  - CEREBROVASCULAR ACCIDENT [None]
  - EROSIVE DUODENITIS [None]
  - OESOPHAGEAL ULCER [None]
  - SINUS BRADYCARDIA [None]
